FAERS Safety Report 13431217 (Version 4)
Quarter: 2017Q2

REPORT INFORMATION
  Report Type: Spontaneous
  Country: AU (occurrence: AU)
  Receive Date: 20170412
  Receipt Date: 20170602
  Transmission Date: 20170830
  Serious: Yes (Death, Hospitalization, Other)
  Sender: FDA-Public Use
  Company Number: AU-PFIZER INC-2017156527

PATIENT
  Sex: Female

DRUGS (4)
  1. ADVIL [Suspect]
     Active Substance: IBUPROFEN
     Indication: ARTHRALGIA
     Dosage: 200 MG 2 TO 4 PER DAY
     Dates: start: 2005, end: 201611
  2. NUROFEN /00109201/ [Suspect]
     Active Substance: IBUPROFEN
     Indication: BACK PAIN
     Dosage: 2 X 200MG, 1X/DAY
     Dates: end: 201611
  3. PANADOL [Suspect]
     Active Substance: ACETAMINOPHEN
     Indication: BACK PAIN
     Dosage: 2(500MG)PER DAY
     Dates: start: 2005, end: 201611
  4. PANADOL [Suspect]
     Active Substance: ACETAMINOPHEN
     Indication: ARTHRALGIA

REACTIONS (6)
  - Gastric ulcer [Fatal]
  - Renal disorder [Fatal]
  - Haemorrhage [Fatal]
  - Drug use disorder [Fatal]
  - Mental disorder [Unknown]
  - Haematemesis [Unknown]
